FAERS Safety Report 25678552 (Version 1)
Quarter: 2025Q3

REPORT INFORMATION
  Report Type: Report from Study
  Country: CA (occurrence: CA)
  Receive Date: 20250813
  Receipt Date: 20250813
  Transmission Date: 20251021
  Serious: Yes (Hospitalization)
  Sender: ABBVIE
  Company Number: CA-ABBVIE-6406776

PATIENT
  Age: 58 Year
  Sex: Female

DRUGS (1)
  1. RINVOQ [Suspect]
     Active Substance: UPADACITINIB
     Indication: Ankylosing spondylitis
     Route: 048

REACTIONS (5)
  - Pancreatic enzymes increased [Unknown]
  - Hepatic enzyme increased [Unknown]
  - Pneumonia [Unknown]
  - Cholelithiasis [Unknown]
  - Pyrexia [Unknown]

NARRATIVE: CASE EVENT DATE: 20250101
